FAERS Safety Report 10357986 (Version 1)
Quarter: 2014Q3

REPORT INFORMATION
  Report Type: Spontaneous
  Country: FR (occurrence: FR)
  Receive Date: 20140801
  Receipt Date: 20140801
  Transmission Date: 20150326
  Serious: Yes (Other)
  Sender: FDA-Public Use
  Company Number: FR-SA-2014SA095755

PATIENT
  Age: 64 Year
  Sex: Female

DRUGS (17)
  1. TAHOR [Concomitant]
     Active Substance: ATORVASTATIN CALCIUM
     Dosage: START DATE: END 2013
     Route: 048
     Dates: start: 2013
  2. FOLFOX-4 [Concomitant]
     Indication: CHEMOTHERAPY
     Dates: start: 20110518
  3. FOLFOX-4 [Concomitant]
     Indication: CHEMOTHERAPY
     Dates: start: 20110302
  4. FOLFOX-4 [Concomitant]
     Indication: CHEMOTHERAPY
     Dates: start: 20110615
  5. FOLFOX-4 [Concomitant]
     Indication: CHEMOTHERAPY
     Dates: start: 20110330
  6. FOLFOX-4 [Concomitant]
     Indication: CHEMOTHERAPY
     Dates: start: 20110413
  7. FOLFOX-4 [Concomitant]
     Indication: CHEMOTHERAPY
     Dates: start: 20110713
  8. ELOXATIN [Suspect]
     Active Substance: OXALIPLATIN
     Indication: COLON CANCER
     Route: 042
     Dates: start: 20110202, end: 20110713
  9. SOLU-MEDROL [Suspect]
     Active Substance: METHYLPREDNISOLONE SODIUM SUCCINATE
     Indication: PROPHYLAXIS OF NAUSEA AND VOMITING
     Dosage: DOSE: 1 AMPOULE
     Route: 042
     Dates: start: 20110202, end: 20110713
  10. FOLFOX-4 [Concomitant]
     Indication: CHEMOTHERAPY
     Dates: start: 20110629
  11. FOLFOX-4 [Concomitant]
     Indication: CHEMOTHERAPY
     Dates: start: 20110316
  12. CALCIUM FOLINATE [Suspect]
     Active Substance: LEUCOVORIN CALCIUM
     Indication: COLON CANCER
     Route: 042
     Dates: start: 20110202, end: 20110713
  13. FOLFOX-4 [Concomitant]
     Indication: CHEMOTHERAPY
     Dates: start: 20110202
  14. FOLFOX-4 [Concomitant]
     Indication: CHEMOTHERAPY
     Dates: start: 20110601
  15. ONDANSETRON [Suspect]
     Active Substance: ONDANSETRON
     Indication: PROPHYLAXIS OF NAUSEA AND VOMITING
     Dosage: DOSE: 1 AMPOULE
     Route: 042
     Dates: start: 20110202, end: 20110713
  16. FOLFOX-4 [Concomitant]
     Indication: CHEMOTHERAPY
     Dates: start: 20110216
  17. FOLFOX-4 [Concomitant]
     Indication: CHEMOTHERAPY
     Dates: start: 20110427

REACTIONS (4)
  - Splenomegaly [Not Recovered/Not Resolved]
  - Portal hypertension [Not Recovered/Not Resolved]
  - Hepatic enzyme increased [Not Recovered/Not Resolved]
  - Thrombocytopenia [Not Recovered/Not Resolved]

NARRATIVE: CASE EVENT DATE: 20110209
